FAERS Safety Report 14190063 (Version 1)
Quarter: 2017Q4

REPORT INFORMATION
  Report Type: Spontaneous
  Country: SA (occurrence: SA)
  Receive Date: 20171115
  Receipt Date: 20171115
  Transmission Date: 20180321
  Serious: Yes (Hospitalization)
  Sender: FDA-Public Use
  Company Number: PHHY2017SA165873

PATIENT
  Age: 4 Month
  Sex: Male

DRUGS (2)
  1. OCTREOTIDE. [Suspect]
     Active Substance: OCTREOTIDE
     Dosage: 30 UG/KG, QD
     Route: 065
  2. OCTREOTIDE. [Suspect]
     Active Substance: OCTREOTIDE
     Indication: HYPERINSULINISM
     Dosage: 20 UG/KG, QD
     Route: 065

REACTIONS (7)
  - Necrotising enterocolitis neonatal [Recovering/Resolving]
  - Vomiting [Recovering/Resolving]
  - Abdominal distension [Recovering/Resolving]
  - Gastroenteritis [Recovering/Resolving]
  - Rotavirus infection [Recovering/Resolving]
  - Diarrhoea haemorrhagic [Recovering/Resolving]
  - Product use in unapproved indication [Unknown]
